FAERS Safety Report 8220509-2 (Version None)
Quarter: 2012Q1

REPORT INFORMATION
  Report Type: 
  Country: None (occurrence: None)
  Receive Date: 20120320
  Receipt Date: 20120312
  Transmission Date: 20120608
  Serious: Yes (Other)
  Sender: FDA-Public Use
  Company Number: US-BAYER-2011-029612

PATIENT
  Age: 28 Year
  Sex: Female
  Weight: 95.238 kg

DRUGS (15)
  1. BACTRIM [Concomitant]
     Dosage: UNK
     Dates: start: 20090909
  2. HYDROCODONE BITARTRATE AND ACETAMINOPHEN [Concomitant]
     Indication: ANALGESIC THERAPY
     Dosage: UNK UNK, PRN
     Dates: start: 20090901, end: 20091001
  3. DROSPIRENONE AND ETHINYL ESTRADIOL [Suspect]
     Indication: PREMENSTRUAL SYNDROME
     Dosage: UNK
     Route: 048
     Dates: start: 20081201, end: 20100601
  4. BULK PRODUCERS [Concomitant]
     Dosage: UNK
     Dates: start: 20091009
  5. UNCODEABLE ^UNCLASSIFIABLE^ [Concomitant]
     Dosage: 100 MG, QID
     Route: 048
  6. PEPCID AC [Concomitant]
     Indication: GASTROOESOPHAGEAL REFLUX DISEASE
     Dosage: UNK UNK, PRN
     Dates: start: 20080101
  7. GLYCOPYRROLATE [Concomitant]
     Indication: HYPERCHLORHYDRIA
     Dosage: 1 MG, BID
     Dates: start: 20090901, end: 20091001
  8. KELP [Concomitant]
     Dosage: UNK
     Dates: start: 20091009
  9. PREDNISONE [Concomitant]
     Dosage: UNK
     Dates: end: 20090716
  10. LORTAB [Concomitant]
     Dosage: UNK
     Dates: start: 20090909
  11. NYSTATIN [Concomitant]
     Dosage: UNK
     Dates: start: 20090716
  12. DROSPIRENONE AND ETHINYL ESTRADIOL [Suspect]
     Indication: MENSTRUAL CYCLE MANAGEMENT
  13. MOTRIN [Concomitant]
     Indication: ANALGESIC THERAPY
     Dosage: UNK UNK, PRN
     Dates: start: 20010101
  14. GEODON [Concomitant]
  15. PRILOSEC [Concomitant]
     Dosage: UNK
     Dates: start: 20090910

REACTIONS (5)
  - BILIARY DYSKINESIA [None]
  - GALLBLADDER DISORDER [None]
  - PAIN [None]
  - INJURY [None]
  - CHOLECYSTITIS CHRONIC [None]
